FAERS Safety Report 10196973 (Version 1)
Quarter: 2014Q2

REPORT INFORMATION
  Report Type: Spontaneous
  Country: GB (occurrence: GB)
  Receive Date: 20140527
  Receipt Date: 20140527
  Transmission Date: 20141212
  Serious: Yes (Hospitalization)
  Sender: FDA-Public Use
  Company Number: GB-PFIZER INC-2014142059

PATIENT
  Age: 39 Year
  Sex: Female

DRUGS (13)
  1. DOXORUBICIN [Suspect]
     Indication: HODGKIN^S DISEASE
     Dosage: 25 MG/M2 (ON DAY 1 AND DAY 15 (A+B)
     Route: 042
     Dates: start: 20140509, end: 20140509
  2. BLEOMYCIN [Suspect]
     Indication: HODGKIN^S DISEASE
     Dosage: 10000 UNITS/ M2 (DAY 1 AND 15 (A+B)
     Route: 042
     Dates: start: 20140509, end: 20140509
  3. DACARBAZINE [Suspect]
     Indication: HODGKIN^S DISEASE
     Dosage: 375 MG/M2 (DAY 1 AND 15 (A+B)
     Route: 042
     Dates: start: 20140509, end: 20140509
  4. VINBLASTINE [Suspect]
     Indication: HODGKIN^S DISEASE
     Dosage: 6 MG/M2 (DAY 1 AND 15 (A+B)
     Route: 042
     Dates: start: 20140509, end: 20140509
  5. CO-TRIMOXAZOLE [Concomitant]
     Dosage: 480 MG, 2X/DAY (ON MON, WED AND FRI)
     Route: 048
  6. ALLOPURINOL [Concomitant]
     Dosage: 300 MG, 1X/DAY FOR FOUR WEEKS, 1ST CYCLE.
     Route: 048
  7. ONDANSETRON [Concomitant]
     Dosage: 4 MG, 1-2 TWICE DAILY FOR 2 DAYS POST CHEMO
  8. DEXAMETHASONE [Concomitant]
     Dosage: 4 MG, 2X/DAY, DAYS 1-3 AND 15-17.
  9. CYCLIZINE [Concomitant]
     Dosage: 50 MG, 3X/DAY, POST CHEMO
  10. DOMPERIDONE [Concomitant]
     Dosage: 4 TIMES DAILY WHEN REQUIRED FOR 5 DAYS POST CHEMO
  11. DOCUSATE SODIUM [Concomitant]
     Dosage: 200 MG, 1X/DAY, AT NIGHT POST CHEMO.
  12. TRAMADOL [Concomitant]
     Indication: HEADACHE
     Dosage: 1-2 FOUR TIMES DAILY WHEN REQUIRED. ONGOING.
  13. PARACETAMOL [Concomitant]
     Dosage: 1 G, 4X/DAY
     Route: 048

REACTIONS (3)
  - Migraine [Recovered/Resolved]
  - Malaise [Recovered/Resolved]
  - Photopsia [Recovered/Resolved]
